FAERS Safety Report 25049663 (Version 1)
Quarter: 2025Q1

REPORT INFORMATION
  Report Type: Spontaneous
  Country: US (occurrence: US)
  Receive Date: 20250307
  Receipt Date: 20250307
  Transmission Date: 20250409
  Serious: No
  Sender: SAMSUNG BIOEPIS
  Company Number: US-SAMSUNG BIOEPIS-SB-2024-20093

PATIENT
  Age: 65 Year
  Sex: Male

DRUGS (1)
  1. HADLIMA [Suspect]
     Active Substance: ADALIMUMAB-BWWD
     Indication: Psoriasis
     Route: 058
     Dates: start: 202404, end: 20240516

REACTIONS (2)
  - Vasculitic rash [Not Recovered/Not Resolved]
  - Rash [Not Recovered/Not Resolved]
